FAERS Safety Report 7445170-6 (Version None)
Quarter: 2011Q2

REPORT INFORMATION
  Report Type: 
  Country: None (occurrence: None)
  Receive Date: 20110429
  Receipt Date: 20110418
  Transmission Date: 20111010
  Serious: Yes (Other)
  Sender: FDA-Public Use
  Company Number: US-JNJFOC-20110408836

PATIENT
  Sex: Female
  Weight: 65.77 kg

DRUGS (15)
  1. DURAGESIC-50 [Suspect]
     Indication: PAIN
     Dosage: EVERY 48 HOURS
     Route: 062
  2. DURAGESIC-50 [Suspect]
     Dosage: EVERY 48 HOURS
     Route: 062
  3. TRAZODONE [Concomitant]
     Indication: FIBROMYALGIA
     Dosage: NIGHTLY
     Route: 048
  4. AMITRIPTYLINE [Concomitant]
     Indication: FIBROMYALGIA
     Dosage: NIGHTLY
     Route: 048
  5. DURAGESIC-50 [Suspect]
     Dosage: EVERY 48 HOURS
     Route: 062
  6. SYNTHROID [Concomitant]
     Indication: AUTOIMMUNE THYROIDITIS
     Route: 048
  7. ZANAFLEX [Concomitant]
     Indication: FIBROMYALGIA
     Route: 048
  8. AMITRIPTYLINE [Concomitant]
     Indication: INSOMNIA
     Dosage: NIGHTLY
     Route: 048
  9. DILAUDID [Concomitant]
     Indication: BREAKTHROUGH PAIN
     Dosage: AS NEEDED
     Route: 048
  10. FENTANYL-100 [Suspect]
     Indication: PRODUCT USED FOR UNKNOWN INDICATION
     Dosage: NDC: 67767-123-18
     Route: 062
  11. DIAZEPAM [Concomitant]
     Indication: BREAKTHROUGH PAIN
     Dosage: AS NEEDED
     Route: 048
  12. BACLOFEN [Concomitant]
     Indication: FIBROMYALGIA
     Dosage: AS NEEDED
     Route: 048
  13. TRAZODONE [Concomitant]
     Indication: INSOMNIA
     Dosage: NIGHTLY
     Route: 048
  14. TEMAZEPAM [Concomitant]
     Indication: INSOMNIA
     Dosage: ONE OR TWO CAPSULES AS NEEDED
     Route: 048
  15. FENTANYL-100 [Suspect]
     Indication: PAIN
     Dosage: EVERY 48 HOURS
     Route: 062

REACTIONS (13)
  - CHOLECYSTECTOMY [None]
  - NEUROMA [None]
  - CONCUSSION [None]
  - WEIGHT DECREASED [None]
  - FRACTURED SACRUM [None]
  - WITHDRAWAL SYNDROME [None]
  - FALL [None]
  - WHIPLASH INJURY [None]
  - APPLICATION SITE SCAB [None]
  - FACIAL BONES FRACTURE [None]
  - BRONCHITIS CHRONIC [None]
  - TREATMENT NONCOMPLIANCE [None]
  - EATING DISORDER [None]
